FAERS Safety Report 9331106 (Version 1)
Quarter: 2013Q2

REPORT INFORMATION
  Report Type: Spontaneous
  Country: CA (occurrence: None)
  Receive Date: 20130531
  Receipt Date: 20130531
  Transmission Date: 20140414
  Serious: Yes (Hospitalization, Other)
  Sender: FDA-Public Use
  Company Number: FK201301704

PATIENT
  Age: 80 Year
  Sex: Female

DRUGS (5)
  1. MORPHINE (MANUFACTURER UNKNOWN) (MORPHINE) (MORPHINE) [Suspect]
     Indication: PAIN
  2. ACETAMINOPHEN (PARACETAMOL) [Concomitant]
  3. CODEINE SULFATE (CODEINE SULFATE) [Concomitant]
  4. SUSTAINED-RELEASE HYDROMORPHONE (HYDROMORPHONE) [Concomitant]
  5. IMMEDIATE-RELEASE HYDROMORPHONE (HYDROMORPHONE) [Concomitant]

REACTIONS (3)
  - Colonic pseudo-obstruction [None]
  - Hyponatraemia [None]
  - Back pain [None]
